FAERS Safety Report 25919684 (Version 2)
Quarter: 2025Q4

REPORT INFORMATION
  Report Type: Spontaneous
  Country: CH (occurrence: CH)
  Receive Date: 20251014
  Receipt Date: 20251024
  Transmission Date: 20260118
  Serious: Yes (Other)
  Sender: NOVO NORDISK
  Company Number: CH-NOVOPROD-1527988

PATIENT
  Age: 51 Year
  Sex: Male
  Weight: 131.1 kg

DRUGS (2)
  1. WEGOVY [Suspect]
     Active Substance: SEMAGLUTIDE
     Indication: Weight control
     Dosage: 2.40 MG, QW (DOSE  ECALATION ACCORDING TO THE PACKAGE INSERT.)
     Route: 058
     Dates: start: 20240318, end: 20250319
  2. ITRACONAZOLE [Suspect]
     Active Substance: ITRACONAZOLE
     Indication: Product used for unknown indication
     Dosage: 2-0-2 (2 IN THE MORNING AND IN THE EVENING)

REACTIONS (1)
  - Hepatocellular carcinoma [Unknown]

NARRATIVE: CASE EVENT DATE: 20250309
